FAERS Safety Report 8661308 (Version 2)
Quarter: 2013Q1

REPORT INFORMATION
  Report Type: Spontaneous
  Country: BR (occurrence: BR)
  Receive Date: 20120712
  Receipt Date: 20130129
  Transmission Date: 20140127
  Serious: Yes (Other)
  Sender: FDA-Public Use
  Company Number: PHHY2012BR058450

PATIENT
  Age: 67 Year
  Sex: Female

DRUGS (8)
  1. GALVUS [Suspect]
     Indication: DIABETES MELLITUS
     Dosage: 2 DF, DAILY (50 MG)
  2. DIOVAN HCT [Suspect]
     Dosage: 1 DF, DAILY (160 MG VALS AND 25 MG HYDR)
  3. TEGRETOL [Suspect]
     Indication: FEELING OF RELAXATION
     Dosage: 2 DF, DAILY (200 MG)
  4. AMARYL [Concomitant]
     Dosage: 2 DF, UNK
  5. CONCOR [Concomitant]
  6. MAREVAN [Concomitant]
  7. SUSTRATE [Concomitant]
  8. SIMVASTATIN [Concomitant]

REACTIONS (4)
  - Fall [Recovering/Resolving]
  - Femur fracture [Recovering/Resolving]
  - Gait disturbance [Not Recovered/Not Resolved]
  - Anxiety [Unknown]
